FAERS Safety Report 6283706-1 (Version None)
Quarter: 2009Q3

REPORT INFORMATION
  Report Type: 
  Country: None (occurrence: None)
  Receive Date: 20090724
  Receipt Date: 20090522
  Transmission Date: 20100115
  Serious: Yes (Hospitalization)
  Sender: FDA-Public Use
  Company Number: GB-ALEXION-A200900431

PATIENT

DRUGS (2)
  1. SOLIRIS [Suspect]
     Indication: MULTIFOCAL MOTOR NEUROPATHY
     Dosage: UNK
     Route: 042
     Dates: start: 20090512, end: 20090512
  2. IMMUNOGLOBULIN                     /00025201/ [Concomitant]
     Indication: MULTIFOCAL MOTOR NEUROPATHY
     Dosage: 95 MG, SINGLE
     Route: 042
     Dates: start: 20090513, end: 20090513

REACTIONS (5)
  - ABDOMINAL DISCOMFORT [None]
  - CHILLS [None]
  - HEADACHE [None]
  - NAUSEA [None]
  - VOMITING [None]
